FAERS Safety Report 5048177-1 (Version None)
Quarter: 2006Q3

REPORT INFORMATION
  Report Type: 
  Country: None (occurrence: None)
  Receive Date: 20060711
  Receipt Date: 20060630
  Transmission Date: 20061208
  Serious: Yes (Hospitalization, Other)
  Sender: FDA-Public Use
  Company Number: US-JNJFOC-20060700895

PATIENT
  Age: 56 Year
  Sex: Female
  Weight: 114.76 kg

DRUGS (8)
  1. TOPAMAX [Suspect]
     Indication: HEADACHE
     Route: 048
  2. HYDROCHLOROTHIAZIDE [Concomitant]
     Indication: HYPERTENSION
  3. HYDROCHLOROTHIAZIDE [Concomitant]
     Indication: FLUID RETENTION
  4. AVAPRO [Concomitant]
     Indication: HYPERTENSION
  5. NEXIUM [Concomitant]
     Indication: GASTROOESOPHAGEAL REFLUX DISEASE
     Route: 048
  6. LIPITOR [Concomitant]
     Indication: BLOOD CHOLESTEROL INCREASED
  7. ASPIRIN [Concomitant]
     Indication: ANTICOAGULANT THERAPY
  8. MS CONTIN [Concomitant]
     Indication: BACK PAIN

REACTIONS (5)
  - ALOPECIA [None]
  - DYSPNOEA [None]
  - MYOCARDIAL INFARCTION [None]
  - NIGHT SWEATS [None]
  - RASH [None]
